FAERS Safety Report 14665280 (Version 5)
Quarter: 2018Q2

REPORT INFORMATION
  Report Type: Spontaneous
  Country: CA (occurrence: CA)
  Receive Date: 20180321
  Receipt Date: 20180521
  Transmission Date: 20180711
  Serious: Yes (Other)
  Sender: FDA-Public Use
  Company Number: CA-CELLTRION INC.-2018CA017372

PATIENT

DRUGS (8)
  1. INFLECTRA [Suspect]
     Active Substance: INFLIXIMAB-DYYB
     Indication: COLITIS ULCERATIVE
     Dosage: 500 MG/THEN EVERY 8 WEEKS
     Route: 042
     Dates: start: 20170406
  2. INFLECTRA [Suspect]
     Active Substance: INFLIXIMAB-DYYB
     Dosage: UNK, CYCLIC (5 MG/KG EVERY 4 WEEKS)
     Route: 065
  3. INFLECTRA [Suspect]
     Active Substance: INFLIXIMAB-DYYB
     Dosage: 500 MG/THEN EVERY 8 WEEKS
     Route: 042
     Dates: start: 20180105
  4. PAROXETINE. [Concomitant]
     Active Substance: PAROXETINE
     Dosage: 20 MG DIE (1X/DAY)
     Route: 048
  5. INFLECTRA [Suspect]
     Active Substance: INFLIXIMAB-DYYB
     Dosage: 485 MG, CYCLIC
     Route: 065
     Dates: start: 20180412
  6. INFLECTRA [Suspect]
     Active Substance: INFLIXIMAB-DYYB
     Dosage: INFLECTRA 700 MG ONCE THEN 500MG EVERY 4 WEEKS
     Route: 042
     Dates: start: 20180510
  7. INFLECTRA [Suspect]
     Active Substance: INFLIXIMAB-DYYB
     Dosage: 500 MG/THEN EVERY 8 WEEKS
     Route: 042
     Dates: start: 20180309
  8. SEROQUEL [Concomitant]
     Active Substance: QUETIAPINE FUMARATE
     Dosage: 25 MG X 2 HS + 1 TABLET TID (3X/DAY)
     Route: 048

REACTIONS (10)
  - Drug ineffective [Unknown]
  - Product use issue [Unknown]
  - Incorrect drug administration duration [Unknown]
  - Aphonia [Recovered/Resolved]
  - Oropharyngeal pain [Not Recovered/Not Resolved]
  - Gastrointestinal inflammation [Unknown]
  - Pharyngitis [Unknown]
  - Depressed mood [Not Recovered/Not Resolved]
  - Bronchitis [Recovered/Resolved]
  - Rectal haemorrhage [Unknown]

NARRATIVE: CASE EVENT DATE: 20180105
